FAERS Safety Report 17600441 (Version 2)
Quarter: 2020Q3

REPORT INFORMATION
  Report Type: Report from Study
  Country: US (occurrence: US)
  Receive Date: 20200330
  Receipt Date: 20200730
  Transmission Date: 20201102
  Serious: No
  Sender: FDA-Public Use
  Company Number: NVSC2020US086013

PATIENT
  Age: 70 Year
  Sex: Female
  Weight: 105 kg

DRUGS (1)
  1. LAMPRENE [Suspect]
     Active Substance: CLOFAZIMINE
     Indication: MYCOBACTERIUM AVIUM COMPLEX INFECTION
     Dosage: 100 MG
     Route: 048
     Dates: start: 201901, end: 20200617

REACTIONS (5)
  - Nausea [Unknown]
  - Dry skin [Not Recovered/Not Resolved]
  - Abdominal pain upper [Unknown]
  - Insomnia [Not Recovered/Not Resolved]
  - Skin discolouration [Recovering/Resolving]

NARRATIVE: CASE EVENT DATE: 20200106
